FAERS Safety Report 7487258-X (Version None)
Quarter: 2011Q2

REPORT INFORMATION
  Report Type: 
  Country: None (occurrence: None)
  Receive Date: 20110518
  Receipt Date: 20110503
  Transmission Date: 20111010
  Serious: Yes (Life-Threatening, Other)
  Sender: FDA-Public Use
  Company Number: CN-JNJFOC-20110400354

PATIENT
  Age: 35 Year
  Sex: Male

DRUGS (4)
  1. REMICADE [Suspect]
     Indication: PSORIATIC ARTHROPATHY
     Route: 042
     Dates: start: 20110314
  2. REMICADE [Suspect]
     Dosage: 2 INFUSIONS ON UNSPECIFIED DATES IN 2009 OR 2010
     Route: 042
  3. REMICADE [Suspect]
     Route: 042
     Dates: start: 20110328
  4. PHENERGAN HCL [Concomitant]
     Indication: PREMEDICATION
     Route: 030
     Dates: start: 20110314, end: 20110328

REACTIONS (3)
  - INFUSION RELATED REACTION [None]
  - DYSPNOEA [None]
  - CONFUSIONAL STATE [None]
